FAERS Safety Report 11821406 (Version 5)
Quarter: 2016Q1

REPORT INFORMATION
  Report Type: Spontaneous
  Country: US (occurrence: US)
  Receive Date: 20151210
  Receipt Date: 20160222
  Transmission Date: 20160525
  Serious: No
  Sender: FDA-Public Use
  Company Number: US-PFIZER INC-2015388308

PATIENT
  Age: 73 Year
  Sex: Female

DRUGS (10)
  1. FISH OIL OMEGA 3 [Concomitant]
     Dosage: UNK
  2. ANASTROZOLE. [Concomitant]
     Active Substance: ANASTROZOLE
     Dosage: UNK
  3. FASLODEX [Concomitant]
     Active Substance: FULVESTRANT
     Dosage: UNK
  4. KRILL OIL [Concomitant]
     Active Substance: DIETARY SUPPLEMENT
     Dosage: UNK
  5. METFORMIN HCL [Concomitant]
     Active Substance: METFORMIN HYDROCHLORIDE
     Dosage: UNK
  6. LISINOPRIL. [Concomitant]
     Active Substance: LISINOPRIL
     Dosage: UNK
  7. IBRANCE [Suspect]
     Active Substance: PALBOCICLIB
     Dosage: 125 MG, DAILY CYCLIC (FOR 3 WEEKS ON/ 1 WEEK OFF) (TAKE 1 CAPSULE (125 MG) BY MOUTH DAILY)
     Route: 048
     Dates: start: 20150624
  8. GLIMEPIRIDE. [Concomitant]
     Active Substance: GLIMEPIRIDE
     Dosage: UNK
  9. XARELTO [Concomitant]
     Active Substance: RIVAROXABAN
     Dosage: UNK
  10. EXEMESTANE. [Concomitant]
     Active Substance: EXEMESTANE
     Dosage: UNK

REACTIONS (14)
  - Hot flush [Unknown]
  - Cough [Unknown]
  - Haemoptysis [Unknown]
  - Dysphonia [Unknown]
  - Aphonia [Unknown]
  - Asthenia [Unknown]
  - White blood cell count decreased [Unknown]
  - Rash papular [Unknown]
  - Urticaria [Unknown]
  - Gastrooesophageal reflux disease [Unknown]
  - Pruritus generalised [Unknown]
  - Dyspepsia [Unknown]
  - Rash [Unknown]
  - Skin burning sensation [Unknown]
